FAERS Safety Report 7266814-8 (Version None)
Quarter: 2011Q1

REPORT INFORMATION
  Report Type: 
  Country: None (occurrence: None)
  Receive Date: 20110201
  Receipt Date: 20110121
  Transmission Date: 20110831
  Serious: Yes (Other)
  Sender: FDA-Public Use
  Company Number: CA-JNJFOC-20101200464

PATIENT
  Sex: Female
  Weight: 68.04 kg

DRUGS (4)
  1. REMICADE [Suspect]
     Route: 042
  2. PREVACID [Concomitant]
     Route: 048
  3. PRENATAL VITAMINS [Concomitant]
     Route: 048
  4. REMICADE [Suspect]
     Indication: CROHN'S DISEASE
     Route: 042

REACTIONS (2)
  - ABORTION SPONTANEOUS [None]
  - DRUG EXPOSURE DURING PREGNANCY [None]
